FAERS Safety Report 4949544-4 (Version None)
Quarter: 2006Q1

REPORT INFORMATION
  Report Type: 
  Country: None (occurrence: None)
  Receive Date: 20060316
  Receipt Date: 20060308
  Transmission Date: 20060701
  Serious: Yes (Hospitalization)
  Sender: FDA-Public Use
  Company Number: 2006033024

PATIENT
  Age: 17 Year
  Sex: Male
  Weight: 75.2971 kg

DRUGS (2)
  1. DRAMAMINE [Suspect]
     Indication: EUPHORIC MOOD
     Dosage: 30 TABLETS ONCE, ORAL
     Route: 048
     Dates: start: 20060305, end: 20060305
  2. ESCITALOPRAM (ESCITALOPRAM) [Concomitant]

REACTIONS (11)
  - ABNORMAL BEHAVIOUR [None]
  - DISTURBANCE IN ATTENTION [None]
  - HYPERTENSION [None]
  - INCOHERENT [None]
  - INSOMNIA [None]
  - INTENTIONAL DRUG MISUSE [None]
  - INTENTIONAL OVERDOSE [None]
  - LOSS OF CONSCIOUSNESS [None]
  - MUSCLE TWITCHING [None]
  - MYDRIASIS [None]
  - STARING [None]
